FAERS Safety Report 6406189-7 (Version None)
Quarter: 2009Q4

REPORT INFORMATION
  Report Type: 
  Country: None (occurrence: None)
  Receive Date: 20091014
  Receipt Date: 20091009
  Transmission Date: 20100525
  Serious: Yes (Death)
  Sender: FDA-Public Use
  Company Number: 2009SP029592

PATIENT
  Age: 53 Year
  Sex: Female

DRUGS (1)
  1. PEG-INTRON [Suspect]
     Indication: HEPATITIS C
     Dosage: 50 MCG

REACTIONS (4)
  - BACTERAEMIA [None]
  - DISEASE COMPLICATION [None]
  - HEPATITIS C [None]
  - RENAL FAILURE ACUTE [None]
